FAERS Safety Report 4963554-2 (Version None)
Quarter: 2006Q1

REPORT INFORMATION
  Report Type: 
  Country: None (occurrence: None)
  Receive Date: 20060330
  Receipt Date: 20060317
  Transmission Date: 20060701
  Serious: Yes (Other)
  Sender: FDA-Public Use
  Company Number: 8015734

PATIENT

DRUGS (1)
  1. KEPPRA [Suspect]
     Dates: start: 20050401, end: 20050701

REACTIONS (1)
  - APLASTIC ANAEMIA [None]
